FAERS Safety Report 7598339-4 (Version None)
Quarter: 2011Q3

REPORT INFORMATION
  Report Type: 
  Country: None (occurrence: None)
  Receive Date: 20110708
  Receipt Date: 20110628
  Transmission Date: 20111222
  Serious: Yes (Hospitalization, Other)
  Sender: FDA-Public Use
  Company Number: PHEH2006US14750

PATIENT
  Sex: Female
  Weight: 85.261 kg

DRUGS (62)
  1. ZOMETA [Suspect]
     Dosage: UNK
     Dates: end: 20050101
  2. LIDOCAINE [Concomitant]
  3. REQUIP [Concomitant]
  4. VICODIN [Concomitant]
     Indication: PAIN
  5. XELODA [Concomitant]
  6. ANTIHISTAMINES [Concomitant]
  7. METHADONE HCL [Concomitant]
  8. LOVENOX [Concomitant]
     Dosage: BI-WEEK
  9. FOLIC ACID [Concomitant]
  10. ATIVAN [Concomitant]
     Indication: SLEEP DISORDER
     Dosage: 1 MG, PRN
  11. FEMARA [Concomitant]
  12. ZYPREXA [Concomitant]
     Dosage: ONE TABLET AT BEDTIME
     Route: 048
     Dates: start: 20090225
  13. ADVAIR DISKUS 100/50 [Concomitant]
     Dosage: UNK
     Dates: start: 20090123
  14. ALBUTEROL SULFATE AUTOHALER [Concomitant]
     Indication: DYSPNOEA
  15. AZITHROMYCIN [Concomitant]
     Indication: MUSCLE SPASMS
     Dosage: 1 MG, Q12H, PRN
  16. COUMADIN [Concomitant]
  17. MORPHINE [Concomitant]
  18. FENTANYL [Concomitant]
  19. PROZAC [Concomitant]
  20. VITAMIN D [Concomitant]
     Indication: OSTEOPOROSIS
  21. TAXOTERE [Concomitant]
  22. COMPAZINE [Concomitant]
     Dosage: UNK
     Dates: start: 20081223
  23. LORATADINE [Concomitant]
     Indication: UPPER RESPIRATORY TRACT INFECTION
  24. LORAZEPAM [Concomitant]
     Indication: INSOMNIA
  25. NEURONTIN [Concomitant]
     Dosage: 600 MG, BID
  26. METOCLOPRAMIDE [Concomitant]
  27. FERROUS SULFATE TAB [Concomitant]
  28. ANASTROZOLE [Concomitant]
     Dosage: 1 MG, UNK
     Route: 048
  29. KAON CL [Concomitant]
     Dosage: 10 MEQ, UNK
     Route: 048
  30. GUAIFENESIN [Concomitant]
  31. MIGRANAL [Concomitant]
  32. AREDIA [Suspect]
     Dosage: UNK
     Dates: start: 19990101
  33. HERCEPTIN [Concomitant]
  34. CLONAZEPAM [Concomitant]
  35. VITAMIN B-12 [Concomitant]
  36. TORADOL [Concomitant]
     Indication: PAIN
     Dosage: UNK
  37. TYLENOL-500 [Concomitant]
     Indication: PAIN
  38. NAVELBINE [Concomitant]
  39. SEROQUEL [Concomitant]
     Indication: MOOD SWINGS
     Dosage: 50 MG Q PM
  40. ETODOLAC [Concomitant]
     Dosage: 1 DF, QD
  41. BEXTRA [Concomitant]
     Dosage: 20 MG, QD
  42. PROVENTIL [Concomitant]
  43. CIPROFLOXACIN [Concomitant]
  44. ALOXI [Concomitant]
  45. KYTRIL [Concomitant]
  46. PRILOSEC [Concomitant]
  47. CHLORHEXIDINE GLUCONATE [Concomitant]
  48. TAMOXIFEN CITRATE [Concomitant]
  49. OXYCONTIN [Concomitant]
  50. AMOXICILLIN [Concomitant]
  51. FLEXERIL [Concomitant]
  52. AUGMENTIN '125' [Concomitant]
  53. OXYCODONE HCL [Concomitant]
  54. VIOXX [Concomitant]
  55. ZOFRAN [Concomitant]
  56. CALCIUM CARBONATE [Concomitant]
  57. FASLODEX [Concomitant]
  58. EFFEXOR [Concomitant]
     Indication: DEPRESSION
     Dosage: 75 MG, BID
  59. DOXIL [Concomitant]
  60. GEMCITABINE [Concomitant]
  61. PROXETINE [Concomitant]
  62. LASIX [Concomitant]

REACTIONS (102)
  - OSTEONECROSIS OF JAW [None]
  - PAIN IN JAW [None]
  - DECREASED INTEREST [None]
  - UPPER RESPIRATORY TRACT INFECTION [None]
  - HAEMOGLOBIN DECREASED [None]
  - NEUTROPHIL COUNT INCREASED [None]
  - RED BLOOD CELL COUNT DECREASED [None]
  - WHITE BLOOD CELL COUNT INCREASED [None]
  - MOOD SWINGS [None]
  - THYROID NEOPLASM [None]
  - OESOPHAGITIS [None]
  - OBSTRUCTIVE AIRWAYS DISORDER [None]
  - ORTHOSTATIC HYPOTENSION [None]
  - NODULE [None]
  - LYMPHOEDEMA [None]
  - CALCINOSIS [None]
  - OSTEOPOROSIS [None]
  - EOSINOPHIL COUNT DECREASED [None]
  - MONOCYTE COUNT DECREASED [None]
  - HEADACHE [None]
  - FIBROMYALGIA [None]
  - DECREASED APPETITE [None]
  - EAR HAEMORRHAGE [None]
  - OSTEOMYELITIS [None]
  - PYREXIA [None]
  - ABDOMINAL MASS [None]
  - MASS [None]
  - LUNG NEOPLASM [None]
  - LYMPHOCYTE COUNT DECREASED [None]
  - OEDEMA PERIPHERAL [None]
  - GAIT DISTURBANCE [None]
  - LYMPH NODE PALPABLE [None]
  - HEPATIC NEOPLASM [None]
  - DIZZINESS [None]
  - ARTHRALGIA [None]
  - DEPRESSION [None]
  - EAR PAIN [None]
  - URINARY TRACT INFECTION [None]
  - PERIVASCULAR DERMATITIS [None]
  - SPINAL OSTEOARTHRITIS [None]
  - ANXIETY [None]
  - DYSPNOEA [None]
  - BLOOD PRESSURE INCREASED [None]
  - ABDOMINAL PAIN [None]
  - SARCOIDOSIS [None]
  - NEUROPATHY PERIPHERAL [None]
  - LEFT VENTRICULAR HYPERTROPHY [None]
  - SPINAL COLUMN STENOSIS [None]
  - FAT NECROSIS [None]
  - ENCEPHALITIS HERPES [None]
  - GENERAL PHYSICAL HEALTH DETERIORATION [None]
  - PAIN [None]
  - SINUSITIS [None]
  - SLEEP DISORDER [None]
  - MUSCULOSKELETAL CHEST PAIN [None]
  - INFLAMMATION [None]
  - CALCIFICATION METASTATIC [None]
  - OEDEMA MOUTH [None]
  - BONE DISORDER [None]
  - INTERVERTEBRAL DISC DEGENERATION [None]
  - UPPER RESPIRATORY TRACT CONGESTION [None]
  - DYSARTHRIA [None]
  - BLOOD GLUCOSE INCREASED [None]
  - GLOBULINS INCREASED [None]
  - SCOLIOSIS [None]
  - INSOMNIA [None]
  - PNEUMONIA ASPIRATION [None]
  - ALOPECIA [None]
  - SKIN OEDEMA [None]
  - BACK PAIN [None]
  - CEREBROVASCULAR DISORDER [None]
  - ALBUMIN GLOBULIN RATIO DECREASED [None]
  - HAEMATOCRIT DECREASED [None]
  - JOINT INJURY [None]
  - FEELING ABNORMAL [None]
  - HIATUS HERNIA [None]
  - MENTAL STATUS CHANGES [None]
  - RESTLESS LEGS SYNDROME [None]
  - NECK MASS [None]
  - NORMOCHROMIC NORMOCYTIC ANAEMIA [None]
  - HYPERKERATOSIS [None]
  - PNEUMONIA [None]
  - LUMBAR RADICULOPATHY [None]
  - SCIATICA [None]
  - STRESS FRACTURE [None]
  - GINGIVITIS [None]
  - LEUKODYSTROPHY [None]
  - BRONCHITIS [None]
  - ARTERIOSCLEROSIS [None]
  - AMNESIA [None]
  - FATIGUE [None]
  - ATAXIA [None]
  - ALVEOLITIS [None]
  - PANCREATIC CYST [None]
  - HYPOAESTHESIA [None]
  - ACTINOMYCOSIS [None]
  - FOLATE DEFICIENCY [None]
  - DENTAL FISTULA [None]
  - CELLULITIS [None]
  - ANGINA PECTORIS [None]
  - LACUNAR INFARCTION [None]
  - URTICARIA [None]
